FAERS Safety Report 5720835-2 (Version None)
Quarter: 2008Q2

REPORT INFORMATION
  Report Type: 
  Country: None (occurrence: None)
  Receive Date: 20080429
  Receipt Date: 20080423
  Transmission Date: 20081010
  Serious: Yes (Other)
  Sender: FDA-Public Use
  Company Number: PHHY2008JP06427

PATIENT
  Age: 87 Year
  Sex: Female

DRUGS (5)
  1. GANATON [Concomitant]
     Route: 048
     Dates: start: 20040101, end: 20080223
  2. GASCON [Concomitant]
     Dosage: 40 MG, UNK
     Route: 048
     Dates: start: 20040101, end: 20080223
  3. MARZULENE S [Concomitant]
     Dosage: 2 G, UNK
     Route: 048
     Dates: start: 20040101, end: 20080223
  4. FAMOTIDINE [Concomitant]
     Dosage: 20 MG, UNK
     Route: 048
     Dates: start: 20040101, end: 20080223
  5. DIOVAN [Suspect]
     Indication: HYPERTENSION
     Dosage: 40 MG, UNK
     Route: 048
     Dates: start: 20070623, end: 20080223

REACTIONS (11)
  - ABDOMINAL DISTENSION [None]
  - ALANINE AMINOTRANSFERASE INCREASED [None]
  - ANOREXIA [None]
  - ASPARTATE AMINOTRANSFERASE INCREASED [None]
  - BLOOD ALKALINE PHOSPHATASE INCREASED [None]
  - BLOOD LACTATE DEHYDROGENASE INCREASED [None]
  - DIZZINESS [None]
  - GAMMA-GLUTAMYLTRANSFERASE INCREASED [None]
  - GENERAL PHYSICAL CONDITION ABNORMAL [None]
  - HEPATIC FUNCTION ABNORMAL [None]
  - NAUSEA [None]
